FAERS Safety Report 13243005 (Version 9)
Quarter: 2017Q3

REPORT INFORMATION
  Report Type: Report from Study
  Country: US (occurrence: US)
  Receive Date: 20170217
  Receipt Date: 20170906
  Transmission Date: 20171127
  Serious: Yes (Hospitalization, Other)
  Sender: FDA-Public Use
  Company Number: US-BAYER-2016-201834

PATIENT
  Age: 65 Year
  Sex: Female
  Weight: 113.83 kg

DRUGS (12)
  1. LETAIRIS [Concomitant]
     Active Substance: AMBRISENTAN
     Dosage: UNK
  2. ADEMPAS [Suspect]
     Active Substance: RIOCIGUAT
     Indication: PULMONARY ARTERIAL HYPERTENSION
     Dosage: UNK
     Dates: start: 20160912
  3. PIRFENIDONE. [Concomitant]
     Active Substance: PIRFENIDONE
     Dosage: UNK
     Dates: start: 20170222
  4. ADEMPAS [Suspect]
     Active Substance: RIOCIGUAT
     Indication: PULMONARY ARTERIAL HYPERTENSION
     Dosage: 2.5 MG, TID
     Route: 048
  5. ORENITRAM [Suspect]
     Active Substance: TREPROSTINIL
     Indication: PULMONARY ARTERIAL HYPERTENSION
     Dosage: 1.5 MG, BID
     Route: 048
     Dates: start: 20160711
  6. ADEMPAS [Suspect]
     Active Substance: RIOCIGUAT
     Indication: PULMONARY ARTERIAL HYPERTENSION
     Dosage: 2.5 MG, TID
     Route: 048
  7. ADEMPAS [Suspect]
     Active Substance: RIOCIGUAT
     Indication: PULMONARY ARTERIAL HYPERTENSION
     Dosage: 2 MG, TID
     Route: 048
  8. ADEMPAS [Suspect]
     Active Substance: RIOCIGUAT
     Indication: PULMONARY ARTERIAL HYPERTENSION
     Dosage: 2 MG, TID
     Route: 048
  9. OFEV [Concomitant]
     Active Substance: NINTEDANIB
     Dosage: UNK
     Dates: start: 20161021
  10. ADEMPAS [Suspect]
     Active Substance: RIOCIGUAT
     Indication: PULMONARY ARTERIAL HYPERTENSION
     Dosage: 1.5 MG, TID
     Route: 048
  11. ADEMPAS [Suspect]
     Active Substance: RIOCIGUAT
     Indication: PULMONARY ARTERIAL HYPERTENSION
     Dosage: 2 MG, TID
     Route: 048
  12. UPTRAVI [Concomitant]
     Active Substance: SELEXIPAG

REACTIONS (31)
  - Fluid retention [Unknown]
  - Nausea [Unknown]
  - Dyspnoea [Not Recovered/Not Resolved]
  - Flushing [None]
  - Dyspnoea [Not Recovered/Not Resolved]
  - Palpitations [Unknown]
  - Dehydration [Unknown]
  - Retching [Unknown]
  - Nausea [Unknown]
  - Vomiting [Unknown]
  - Dyspnoea exertional [Unknown]
  - Headache [Not Recovered/Not Resolved]
  - Oedema [Unknown]
  - Productive cough [Unknown]
  - Blood potassium decreased [Unknown]
  - Dyspnoea [None]
  - Fluid retention [Unknown]
  - Epistaxis [Not Recovered/Not Resolved]
  - Headache [None]
  - Feeling abnormal [None]
  - Fluid retention [None]
  - Upper respiratory tract infection [None]
  - Lung disorder [Unknown]
  - Peripheral swelling [Unknown]
  - Fluid retention [Unknown]
  - Joint swelling [Unknown]
  - Dyspnoea [Unknown]
  - Cough [Unknown]
  - Fatigue [Unknown]
  - Dyspnoea at rest [Unknown]
  - Flushing [Unknown]

NARRATIVE: CASE EVENT DATE: 201610
